FAERS Safety Report 8393185-6 (Version None)
Quarter: 2012Q2

REPORT INFORMATION
  Report Type: 
  Country: None (occurrence: None)
  Receive Date: 20120529
  Receipt Date: 20120516
  Transmission Date: 20120825
  Serious: No
  Sender: FDA-Public Use
  Company Number: US-ABBOTT-12P-163-0936287-00

PATIENT
  Sex: Male
  Weight: 105.78 kg

DRUGS (3)
  1. ADVAIR DISKUS 100/50 [Concomitant]
     Indication: ASTHMA
  2. PROAIR HFA [Concomitant]
     Indication: ASTHMA
  3. ANDROGEL [Suspect]
     Indication: BLOOD TESTOSTERONE DECREASED
     Dates: start: 20120401

REACTIONS (1)
  - BLOOD PRESSURE INCREASED [None]
